FAERS Safety Report 14912581 (Version 3)
Quarter: 2019Q3

REPORT INFORMATION
  Report Type: Spontaneous
  Country: US (occurrence: US)
  Receive Date: 20180518
  Receipt Date: 20190711
  Transmission Date: 20191004
  Serious: Yes (Other)
  Sender: FDA-Public Use
  Company Number: US-PERRIGO-18US005197

PATIENT
  Sex: Male
  Weight: 95.24 kg

DRUGS (2)
  1. NICOTINE POLACRILEX [Suspect]
     Active Substance: NICOTINE
     Indication: NICOTINE DEPENDENCE
     Dosage: 4 MG, 5 TIMES DAILY
     Route: 002
     Dates: start: 2013, end: 20190301
  2. NICOTINE POLACRILEX [Suspect]
     Active Substance: NICOTINE
     Indication: NICOTINE DEPENDENCE
     Dosage: 2 MG, 10 TO 15 TIMES DAILY
     Route: 002
     Dates: start: 2013

REACTIONS (2)
  - Nephrolithiasis [Recovered/Resolved]
  - Nicotine dependence [Recovered/Resolved with Sequelae]

NARRATIVE: CASE EVENT DATE: 2013
